FAERS Safety Report 7814237-2 (Version None)
Quarter: 2011Q4

REPORT INFORMATION
  Report Type: 
  Country: None (occurrence: None)
  Receive Date: 20111014
  Receipt Date: 20111006
  Transmission Date: 20120403
  Serious: Yes (Hospitalization)
  Sender: FDA-Public Use
  Company Number: GB-JNJFOC-20111005081

PATIENT
  Age: 83 Year
  Sex: Male
  Weight: 86 kg

DRUGS (5)
  1. PIPERACILLIN AND TAZOBACTAM [Concomitant]
     Dates: start: 20110913
  2. BISOPROLOL [Concomitant]
  3. ACETAMINOPHEN [Concomitant]
     Dates: start: 20110909
  4. XARELTO [Suspect]
     Indication: KNEE ARTHROPLASTY
     Route: 048
     Dates: start: 20110910, end: 20110916
  5. TRIMETHOPRIM [Concomitant]
     Dates: start: 20110913

REACTIONS (2)
  - RASH GENERALISED [None]
  - PRURITUS [None]
